FAERS Safety Report 20500413 (Version 1)
Quarter: 2022Q1

REPORT INFORMATION
  Report Type: Spontaneous
  Country: RU (occurrence: None)
  Receive Date: 20220222
  Receipt Date: 20220222
  Transmission Date: 20220424
  Serious: Yes (Other)
  Sender: FDA-Public Use
  Company Number: RU-ROCHE-3031484

PATIENT
  Age: 60 Year
  Sex: Male

DRUGS (12)
  1. RITUXIMAB [Suspect]
     Active Substance: RITUXIMAB
     Indication: Follicular lymphoma
     Dosage: 6 CYCLES OF R-CHOP
     Route: 065
     Dates: start: 202101, end: 202105
  2. RITUXIMAB [Suspect]
     Active Substance: RITUXIMAB
     Dosage: POLATUZUMAB VEDOTIN 1.8 MG/KG +R-GEMOX
     Route: 065
     Dates: start: 202202
  3. GAZYVA [Suspect]
     Active Substance: OBINUTUZUMAB
     Indication: Follicular lymphoma
     Dosage: 2 CYCLES OF G-BAC
     Route: 042
  4. POLATUZUMAB VEDOTIN [Suspect]
     Active Substance: POLATUZUMAB VEDOTIN
     Indication: Follicular lymphoma
     Dosage: POLATUZUMAB VEDOTIN 1.8 MG/KG +R-GEMOX
     Route: 065
     Dates: start: 202202
  5. CYCLOPHOSPHAMIDE [Suspect]
     Active Substance: CYCLOPHOSPHAMIDE
     Indication: Follicular lymphoma
     Dosage: 6 CYCLES OF R-CHOP
     Route: 065
     Dates: start: 202101, end: 202105
  6. DOXORUBICIN [Suspect]
     Active Substance: DOXORUBICIN
     Indication: Follicular lymphoma
     Dosage: 6 CYCLES OF R-CHOP
     Route: 065
     Dates: start: 202101, end: 202103
  7. VINCRISTINE [Suspect]
     Active Substance: VINCRISTINE
     Indication: Follicular lymphoma
     Dosage: 6 CYCLES OF R-CHOP
     Route: 065
     Dates: start: 202101, end: 202105
  8. PREDNISOLONE [Suspect]
     Active Substance: PREDNISOLONE
     Indication: Follicular lymphoma
     Dosage: 6 CYCLES OF R-CHOP
     Route: 065
     Dates: start: 202101, end: 202105
  9. BENDAMUSTINE [Suspect]
     Active Substance: BENDAMUSTINE
     Indication: Follicular lymphoma
     Dosage: 2 CYCLES OF G-BAC
     Route: 065
  10. CYTARABINE [Suspect]
     Active Substance: CYTARABINE
     Indication: Follicular lymphoma
     Dosage: 2 CYCLES OF G-BAC
     Route: 065
  11. GEMCITABINE [Suspect]
     Active Substance: GEMCITABINE
     Indication: Follicular lymphoma
     Dosage: POLATUZUMAB VEDOTIN 1.8 MG/KG +R-GEMOX
     Route: 065
     Dates: start: 202202
  12. OXALIPLATIN [Suspect]
     Active Substance: OXALIPLATIN
     Indication: Follicular lymphoma
     Dosage: POLATUZUMAB VEDOTIN 1.8 MG/KG +R-GEMOX
     Route: 065
     Dates: start: 202202

REACTIONS (4)
  - Abdominal abscess [Unknown]
  - Large intestine perforation [Unknown]
  - Disease progression [Unknown]
  - Off label use [Unknown]
